FAERS Safety Report 5739369-4 (Version None)
Quarter: 2008Q2

REPORT INFORMATION
  Report Type: 
  Country: None (occurrence: None)
  Receive Date: 20080515
  Receipt Date: 20080505
  Transmission Date: 20081010
  Serious: Yes (Hospitalization, Disabling, Other)
  Sender: FDA-Public Use
  Company Number: US-PFIZER INC-2007032747

PATIENT
  Sex: Female

DRUGS (14)
  1. CELEBREX [Suspect]
     Indication: INTERVERTEBRAL DISC DEGENERATION
     Route: 048
  2. CELEBREX [Suspect]
     Indication: ARTHRITIS
  3. VIOXX [Suspect]
     Indication: INTERVERTEBRAL DISC DEGENERATION
     Route: 048
  4. VIOXX [Suspect]
     Indication: PAIN
  5. ACEON [Concomitant]
     Indication: HYPERTENSION
  6. LASIX [Concomitant]
     Indication: OEDEMA PERIPHERAL
  7. HYDROCODONE BITARTRATE [Concomitant]
     Indication: PAIN
     Dates: start: 20030203, end: 20061001
  8. MORPHINE SULFATE [Concomitant]
     Indication: PAIN
     Dates: start: 20040726, end: 20051016
  9. BUPROPION HCL [Concomitant]
     Indication: DEPRESSION
     Dates: start: 20040323, end: 20041112
  10. ESTRATEST [Concomitant]
     Indication: HYSTERECTOMY
  11. ALPRAZOLAM [Concomitant]
     Indication: ANXIETY DISORDER
  12. LEXAPRO [Concomitant]
     Indication: DEPRESSION
     Dates: start: 20021113, end: 20060830
  13. WELLBUTRIN [Concomitant]
     Indication: DEPRESSION
  14. TRAZODONE HCL [Concomitant]
     Indication: DEPRESSION
     Dates: start: 20040311, end: 20050303

REACTIONS (4)
  - ARTERIAL THROMBOSIS [None]
  - ARTHRITIS [None]
  - DEPRESSION [None]
  - DIABETES MELLITUS [None]
